FAERS Safety Report 19156422 (Version 1)
Quarter: 2021Q2

REPORT INFORMATION
  Report Type: Spontaneous
  Country: US (occurrence: US)
  Receive Date: 20210420
  Receipt Date: 20210420
  Transmission Date: 20210717
  Serious: Yes (Other)
  Sender: FDA-Public Use
  Company Number: US-CURIUM-2005000259

PATIENT
  Age: 50 Year
  Sex: Female

DRUGS (1)
  1. SODIUM IODIDE (I 131) CAPSULES T [Suspect]
     Active Substance: SODIUM IODIDE I-131
     Route: 048
     Dates: start: 20051011, end: 20051011

REACTIONS (3)
  - Swelling face [Unknown]
  - Rash [Unknown]
  - Orbital oedema [Unknown]

NARRATIVE: CASE EVENT DATE: 20051012
